FAERS Safety Report 5331745-7 (Version None)
Quarter: 2007Q2

REPORT INFORMATION
  Report Type: 
  Country: None (occurrence: None)
  Receive Date: 20070517
  Receipt Date: 20070504
  Transmission Date: 20071010
  Serious: Yes (Other)
  Sender: FDA-Public Use
  Company Number: 2007BI008685

PATIENT
  Age: 30 Year
  Sex: Female

DRUGS (4)
  1. AVONEX [Suspect]
     Indication: MULTIPLE SCLEROSIS
     Dosage: 30 UG; QW; IM
     Route: 030
     Dates: start: 19960101, end: 19980101
  2. AVONEX [Suspect]
     Indication: MULTIPLE SCLEROSIS
     Dosage: 30 UG; QW; IM
     Route: 030
     Dates: start: 20011201, end: 20030101
  3. AVONEX [Suspect]
     Indication: MULTIPLE SCLEROSIS
     Dosage: 30 UG; QW; IM
     Route: 030
     Dates: start: 20030101
  4. BLOOD THINNERS (NOS) [Concomitant]

REACTIONS (5)
  - ANTEPARTUM HAEMORRHAGE [None]
  - COAGULOPATHY [None]
  - PLACENTAL DISORDER [None]
  - PREMATURE LABOUR [None]
  - STREPTOCOCCAL INFECTION [None]
